FAERS Safety Report 17240898 (Version 1)
Quarter: 2020Q1

REPORT INFORMATION
  Report Type: Spontaneous
  Country: MW (occurrence: MW)
  Receive Date: 20200107
  Receipt Date: 20200107
  Transmission Date: 20200409
  Serious: Yes (Disabling, Other)
  Sender: FDA-Public Use
  Company Number: MW-SCIEGEN PHARMACEUTICALS INC-2019SCILIT00406

PATIENT
  Age: 25 Year
  Sex: Male

DRUGS (2)
  1. COTRIMOXAZOLE [Suspect]
     Active Substance: SULFAMETHOXAZOLE\TRIMETHOPRIM
  2. NEVIRAPINE TABLETS [Suspect]
     Active Substance: NEVIRAPINE

REACTIONS (3)
  - Conjunctivalisation [Unknown]
  - Endophthalmitis [Unknown]
  - Blindness [Not Recovered/Not Resolved]
